FAERS Safety Report 9075596 (Version 1)
Quarter: 2013Q1

REPORT INFORMATION
  Report Type: Report from Study
  Country: US (occurrence: US)
  Receive Date: 20130131
  Receipt Date: 20130131
  Transmission Date: 20140127
  Serious: No
  Sender: FDA-Public Use
  Company Number: US-ABBOTT-12P-163-1006921-00

PATIENT
  Sex: Female
  Weight: 111.23 kg

DRUGS (13)
  1. HUMIRA [Suspect]
     Indication: RHEUMATOID ARTHRITIS
     Dates: start: 20111109
  2. NAPROXEN [Concomitant]
     Indication: PAIN
  3. SULFASALAZINE [Concomitant]
     Indication: RHEUMATOID ARTHRITIS
  4. METHOTREXATE [Concomitant]
     Indication: RHEUMATOID ARTHRITIS
  5. FOLIC ACID [Concomitant]
     Indication: RHEUMATOID ARTHRITIS
  6. PREDNISONE [Concomitant]
     Indication: RHEUMATOID ARTHRITIS
  7. NIASPAN [Concomitant]
     Indication: BLOOD CHOLESTEROL INCREASED
  8. LOSARTAN [Concomitant]
     Indication: BLOOD CHOLESTEROL INCREASED
  9. SPIRONOLACTONE [Concomitant]
     Indication: FLUID RETENTION
  10. FENOFIBRATE [Concomitant]
     Indication: BLOOD CHOLESTEROL INCREASED
  11. RANITIDINE [Concomitant]
     Indication: GASTROOESOPHAGEAL REFLUX DISEASE
  12. PEROXITINE [Concomitant]
     Indication: DEPRESSION
  13. VITAMIN D [Concomitant]
     Indication: VITAMIN SUPPLEMENTATION

REACTIONS (2)
  - Tendon rupture [Recovering/Resolving]
  - Arthralgia [Recovering/Resolving]
